FAERS Safety Report 8529873-8 (Version None)
Quarter: 2012Q3

REPORT INFORMATION
  Report Type: 
  Country: None (occurrence: None)
  Receive Date: 20120723
  Receipt Date: 20120710
  Transmission Date: 20120928
  Serious: Yes (Hospitalization)
  Sender: FDA-Public Use
  Company Number: FR-NOVOPROD-355839

PATIENT
  Age: 61 Year
  Sex: Female

DRUGS (19)
  1. ALENDRONATE SODIUM [Concomitant]
  2. NEXIUM [Concomitant]
  3. CELLCEPT [Suspect]
     Dosage: 500 MG, QD
     Route: 048
     Dates: start: 20120418, end: 20120419
  4. AZATHIOPRINE [Concomitant]
  5. OROCAL VITAMINE D3 [Concomitant]
  6. LEVEMIR [Suspect]
     Indication: TYPE 1 DIABETES MELLITUS
     Dosage: UNK
     Route: 058
     Dates: start: 20120123, end: 20120510
  7. AMLODIPINE BESYLATE [Concomitant]
  8. CELLCEPT [Suspect]
     Dosage: UNK
     Route: 048
     Dates: start: 20120504
  9. BISOPROLOL FUMARATE [Concomitant]
  10. POTASSIUM CHLORIDE [Concomitant]
  11. PREDNISONE TAB [Concomitant]
  12. ALDACTONE [Concomitant]
  13. NOVORAPID [Suspect]
     Indication: TYPE 1 DIABETES MELLITUS
     Route: 065
     Dates: start: 20120123, end: 20120510
  14. METFORMIN HCL [Concomitant]
  15. RAMIPRIL [Suspect]
     Dosage: UNK
     Dates: start: 20030101, end: 20120503
  16. ZOCOR [Concomitant]
  17. LEVOTHYROXINE SODIUM [Concomitant]
  18. ASPIRIN [Concomitant]
  19. TRAMADOL HCL [Concomitant]

REACTIONS (1)
  - FACE OEDEMA [None]
